FAERS Safety Report 8315068-X (Version None)
Quarter: 2012Q2

REPORT INFORMATION
  Report Type: 
  Country: None (occurrence: None)
  Receive Date: 20120426
  Receipt Date: 20120417
  Transmission Date: 20120825
  Serious: Yes (Hospitalization)
  Sender: FDA-Public Use
  Company Number: NL-JNJFOC-20120310357

PATIENT
  Sex: Male
  Weight: 70 kg

DRUGS (2)
  1. CONCERTA [Suspect]
     Indication: ATTENTION DEFICIT/HYPERACTIVITY DISORDER
     Route: 048
     Dates: start: 20111001, end: 20111230
  2. CONCERTA [Suspect]
     Route: 048

REACTIONS (6)
  - HEART RATE INCREASED [None]
  - ARRHYTHMIA [None]
  - PALPITATIONS [None]
  - DEPRESSED MOOD [None]
  - MALAISE [None]
  - HYPERTENSION [None]
